FAERS Safety Report 5933414-9 (Version None)
Quarter: 2008Q4

REPORT INFORMATION
  Report Type: 
  Country: None (occurrence: None)
  Receive Date: 20081023
  Receipt Date: 20081016
  Transmission Date: 20090506
  Serious: Yes (Death)
  Sender: FDA-Public Use
  Company Number: 1000001403

PATIENT
  Age: 24 Year
  Sex: Male

DRUGS (2)
  1. LEXAPRO [Suspect]
     Indication: EMOTIONAL DISORDER
     Dates: start: 20060101, end: 20061201
  2. LEXAPRO [Suspect]
     Indication: MENTAL DISORDER
     Dates: start: 20060101, end: 20061201

REACTIONS (4)
  - COMPLETED SUICIDE [None]
  - GUN SHOT WOUND [None]
  - HOMICIDE [None]
  - INCOHERENT [None]
